FAERS Safety Report 6887473-X (Version None)
Quarter: 2010Q3

REPORT INFORMATION
  Report Type: 
  Country: None (occurrence: None)
  Receive Date: 20100730
  Receipt Date: 20100720
  Transmission Date: 20110219
  Serious: Yes (Disabling, Other)
  Sender: FDA-Public Use
  Company Number: GB-PFIZER INC-2010082268

PATIENT
  Age: 84 Year
  Sex: Male
  Weight: 95 kg

DRUGS (15)
  1. GABAPENTIN [Suspect]
     Indication: NEUROPATHY PERIPHERAL
     Dosage: 300 MG, 1X/DAY
     Route: 048
     Dates: start: 20100622, end: 20100622
  2. TRAMADOL HYDROCHLORIDE [Concomitant]
     Dosage: 50 MG, 4X/DAY
  3. ATORVASTATIN CALCIUM [Concomitant]
     Dosage: 10 MG, 1X/DAY
  4. ARANESP [Concomitant]
     Dosage: 40 MCG/0.4 ML, WEEKLY
  5. SENNA [Concomitant]
     Dosage: 7.5 MG, 2X/DAY
  6. ACETYLSALICYLIC ACID [Concomitant]
     Dosage: 75 MG, 1X/DAY
  7. XALATAN [Concomitant]
     Dosage: 50 UG/ML, 1X/DAY AT NIGHT
  8. CAPSAICIN [Concomitant]
     Dosage: 3X/DAY
  9. RAMIPRIL [Concomitant]
     Dosage: 2.5 MG, 1X/DAY
  10. OMEPRAZOLE [Concomitant]
     Dosage: 20 MG, 1X/DAY
  11. SEVELAMER [Concomitant]
     Dosage: 800 MG, 3X/DAY
  12. ONE-ALPHA [Concomitant]
     Dosage: 250 NG AND 500NG, 3X/WEEK
  13. ONE-ALPHA [Concomitant]
     Dosage: 500 NG, 3X/WEEK
  14. CHLORPHENAMINE [Concomitant]
     Dosage: 4 MG, 3X/DAY
  15. SOLARAZE [Concomitant]
     Dosage: UNK

REACTIONS (3)
  - ARTHRALGIA [None]
  - MUSCULAR WEAKNESS [None]
  - PAIN IN EXTREMITY [None]
